FAERS Safety Report 12197535 (Version 2)
Quarter: 2016Q2

REPORT INFORMATION
  Report Type: Spontaneous
  Country: JP (occurrence: JP)
  Receive Date: 20160322
  Receipt Date: 20160429
  Transmission Date: 20160815
  Serious: Yes (Disabling, Other)
  Sender: FDA-Public Use
  Company Number: JP-PFIZER INC-2016164820

PATIENT

DRUGS (1)
  1. XALATAN [Suspect]
     Active Substance: LATANOPROST
     Indication: GLAUCOMA
     Dosage: 1 GTT DAILY
     Route: 047
     Dates: end: 201603

REACTIONS (2)
  - Condition aggravated [Not Recovered/Not Resolved]
  - Visual field defect [Not Recovered/Not Resolved]
